FAERS Safety Report 7635718-0 (Version None)
Quarter: 2011Q3

REPORT INFORMATION
  Report Type: 
  Country: None (occurrence: None)
  Receive Date: 20110726
  Receipt Date: 20110722
  Transmission Date: 20111222
  Serious: Yes (Hospitalization)
  Sender: FDA-Public Use
  Company Number: CN-SANOFI-AVENTIS-2011SA046758

PATIENT
  Sex: Female
  Weight: 53 kg

DRUGS (4)
  1. LANTUS [Suspect]
     Indication: DIABETES MELLITUS
     Route: 058
     Dates: start: 20110601
  2. SOLOSTAR [Suspect]
     Indication: DEVICE THERAPY
     Dates: start: 20110601, end: 20110601
  3. REPAGLINIDE [Concomitant]
     Route: 048
     Dates: start: 20070101, end: 20110601
  4. ENALAPRIL MALEATE [Concomitant]
     Indication: HYPERTENSION
     Route: 048
     Dates: start: 20101001, end: 20110601

REACTIONS (2)
  - VISION BLURRED [None]
  - RASH [None]
